FAERS Safety Report 6885114-9 (Version None)
Quarter: 2010Q3

REPORT INFORMATION
  Report Type: 
  Country: None (occurrence: None)
  Receive Date: 20100729
  Receipt Date: 20100729
  Transmission Date: 20110219
  Serious: Yes (Other)
  Sender: FDA-Public Use
  Company Number: None

PATIENT
  Sex: Male
  Weight: 114.1 kg

DRUGS (1)
  1. ZOLPIDEM TARTRATE [Suspect]
     Indication: SLEEP DISORDER
     Dosage: 10 MG AS NEEDED ORAL
     Route: 048
     Dates: start: 20100604, end: 20100611

REACTIONS (2)
  - DRUG INEFFECTIVE [None]
  - PHYSICAL ASSAULT [None]
